FAERS Safety Report 12730929 (Version 1)
Quarter: 2016Q3

REPORT INFORMATION
  Report Type: Spontaneous
  Country: US (occurrence: US)
  Receive Date: 20160909
  Receipt Date: 20160909
  Transmission Date: 20161109
  Serious: Yes (Life-Threatening, Hospitalization, Disabling)
  Sender: FDA-Public Use
  Company Number: None

PATIENT
  Age: 74 Year
  Sex: Male
  Weight: 107.96 kg

DRUGS (13)
  1. WARFARIN [Concomitant]
     Active Substance: WARFARIN
  2. LEVETIRACETAM. [Concomitant]
     Active Substance: LEVETIRACETAM
  3. LISINOPRIL. [Concomitant]
     Active Substance: LISINOPRIL
  4. CLONIDINE. [Concomitant]
     Active Substance: CLONIDINE
  5. XARELTO [Suspect]
     Active Substance: RIVAROXABAN
     Indication: ANTICOAGULANT THERAPY
     Route: 048
     Dates: start: 20140619, end: 20150420
  6. METFORMIN [Concomitant]
     Active Substance: METFORMIN HYDROCHLORIDE
  7. TAMSULOSIN [Concomitant]
     Active Substance: TAMSULOSIN
  8. BABY ASPIRIN [Concomitant]
     Active Substance: ASPIRIN
  9. KEPPRA [Concomitant]
     Active Substance: LEVETIRACETAM
  10. PRAVASTATIN. [Concomitant]
     Active Substance: PRAVASTATIN
  11. AMLODIPINE [Concomitant]
     Active Substance: AMLODIPINE BESYLATE
  12. XARELTO [Suspect]
     Active Substance: RIVAROXABAN
     Indication: ATRIAL FIBRILLATION
     Route: 048
     Dates: start: 20140619, end: 20150420
  13. CARVEDILOL. [Concomitant]
     Active Substance: CARVEDILOL

REACTIONS (3)
  - Internal haemorrhage [None]
  - Muscle disorder [None]
  - Haemorrhagic stroke [None]

NARRATIVE: CASE EVENT DATE: 20160201
